FAERS Safety Report 16934338 (Version 1)
Quarter: 2019Q4

REPORT INFORMATION
  Report Type: Report from Study
  Country: PL (occurrence: PL)
  Receive Date: 20191018
  Receipt Date: 20191018
  Transmission Date: 20200122
  Serious: Yes (Life-Threatening, Hospitalization)
  Sender: FDA-Public Use
  Company Number: PL-ROCHE-2443662

PATIENT
  Age: 78 Year
  Sex: Male

DRUGS (4)
  1. HYDROCHLOROTHIAZIDE;VALSARTAN [Concomitant]
     Active Substance: HYDROCHLOROTHIAZIDE\VALSARTAN
     Indication: HYPERTENSION
     Dosage: 160 + 25 MG
     Route: 065
     Dates: start: 20191009
  2. AMLOPIN [AMLODIPINE] [Concomitant]
     Indication: HYPERTENSION
     Route: 065
     Dates: start: 20191007
  3. ENTRECTINIB [Suspect]
     Active Substance: ENTRECTINIB
     Indication: NEOPLASM
     Dosage: LAST DOSE PRIOR TO SAE: 09/OCT/2019
     Route: 048
     Dates: start: 20191003, end: 20191010
  4. METOPROLOL. [Concomitant]
     Active Substance: METOPROLOL
     Indication: HYPERTENSION
     Route: 065
     Dates: start: 20191009

REACTIONS (1)
  - Cerebrovascular accident [Not Recovered/Not Resolved]

NARRATIVE: CASE EVENT DATE: 20191010
